FAERS Safety Report 5028207-3 (Version None)
Quarter: 2006Q2

REPORT INFORMATION
  Report Type: 
  Country: None (occurrence: None)
  Receive Date: 20060613
  Receipt Date: 20060601
  Transmission Date: 20061013
  Serious: Yes (Hospitalization)
  Sender: FDA-Public Use
  Company Number: 225608

PATIENT
  Age: 72 Year
  Sex: Male

DRUGS (1)
  1. GRTPA            (ALTEPLASE) [Suspect]
     Indication: CEREBRAL INFARCTION
     Dosage: 24 MIU, SINGLE, INTRAVENOUS
     Route: 042
     Dates: start: 20060502, end: 20060502

REACTIONS (4)
  - CEREBRAL INFARCTION [None]
  - CONDITION AGGRAVATED [None]
  - DEPRESSED LEVEL OF CONSCIOUSNESS [None]
  - HYPERTENSION [None]
